FAERS Safety Report 13888635 (Version 3)
Quarter: 2017Q4

REPORT INFORMATION
  Report Type: Spontaneous
  Country: US (occurrence: US)
  Receive Date: 20170821
  Receipt Date: 20171221
  Transmission Date: 20180320
  Serious: Yes (Other)
  Sender: FDA-Public Use
  Company Number: US-ELI_LILLY_AND_COMPANY-US201708006535

PATIENT
  Sex: Male

DRUGS (1)
  1. HUMALOG [Suspect]
     Active Substance: INSULIN LISPRO
     Indication: TYPE 2 DIABETES MELLITUS
     Dosage: 10 U, TID
     Route: 065

REACTIONS (10)
  - Hepatitis B [Unknown]
  - Depression [Unknown]
  - Hepatic cirrhosis [Unknown]
  - Bipolar disorder [Unknown]
  - Anxiety [Unknown]
  - Chronic kidney disease [Unknown]
  - Cardiac failure [Unknown]
  - Portal hypertension [Unknown]
  - Malaise [Unknown]
  - Hepatic failure [Unknown]
